FAERS Safety Report 24020403 (Version 1)
Quarter: 2024Q2

REPORT INFORMATION
  Report Type: Report from Study
  Country: US (occurrence: US)
  Receive Date: 20240627
  Receipt Date: 20240627
  Transmission Date: 20240715
  Serious: Yes (Other)
  Sender: FDA-Public Use
  Company Number: US-TAKEDA-2024TUS055218

PATIENT
  Age: 79 Year
  Sex: Female

DRUGS (1)
  1. FRUQUINTINIB [Suspect]
     Active Substance: FRUQUINTINIB
     Indication: Colon cancer
     Dosage: 5 MILLIGRAM
     Route: 048
     Dates: start: 20240602

REACTIONS (5)
  - Radioembolisation [Recovering/Resolving]
  - Balance disorder [Unknown]
  - Aphonia [Unknown]
  - Skin ulcer [Unknown]
  - Rash [Unknown]

NARRATIVE: CASE EVENT DATE: 20240522
